FAERS Safety Report 6387195-8 (Version None)
Quarter: 2009Q4

REPORT INFORMATION
  Report Type: 
  Country: None (occurrence: None)
  Receive Date: 20091002
  Receipt Date: 20090930
  Transmission Date: 20100525
  Serious: Yes (Hospitalization)
  Sender: FDA-Public Use
  Company Number: JP-EISAI INC.-E2090-00846-SPO-JP

PATIENT
  Age: 1 Year
  Sex: Male

DRUGS (4)
  1. EXCEGRAN [Suspect]
     Indication: EPILEPSY
     Route: 048
     Dates: start: 20090831, end: 20090906
  2. EXCEGRAN [Suspect]
     Route: 048
     Dates: start: 20090907, end: 20090911
  3. LIDOCAINE [Concomitant]
     Dates: start: 20090826, end: 20090829
  4. PHENOBARBITAL TAB [Concomitant]
     Dates: start: 20090823, end: 20090911

REACTIONS (1)
  - NEUROLEPTIC MALIGNANT SYNDROME [None]
